FAERS Safety Report 8207532-9 (Version None)
Quarter: 2012Q1

REPORT INFORMATION
  Report Type: 
  Country: None (occurrence: None)
  Receive Date: 20120314
  Receipt Date: 20120307
  Transmission Date: 20120608
  Serious: Yes (Life-Threatening, Hospitalization)
  Sender: FDA-Public Use
  Company Number: FR-BRISTOL-MYERS SQUIBB COMPANY-16443095

PATIENT
  Age: 70 Year
  Sex: Male

DRUGS (1)
  1. HYDREA [Suspect]

REACTIONS (1)
  - PULMONARY FIBROSIS [None]
